FAERS Safety Report 4618519-7 (Version None)
Quarter: 2005Q2

REPORT INFORMATION
  Report Type: 
  Country: None (occurrence: None)
  Receive Date: 20050311
  Receipt Date: 20041109
  Transmission Date: 20051028
  Serious: No
  Sender: FDA-Public Use
  Company Number: 2004-BP-10663BP

PATIENT
  Sex: Male

DRUGS (7)
  1. SPIRIVA [Suspect]
     Indication: CHRONIC OBSTRUCTIVE PULMONARY DISEASE
     Dosage: 18 MCG (18 MCG), IH
     Route: 055
     Dates: start: 20040601
  2. SPIRIVA [Suspect]
     Indication: RESPIRATORY DISORDER
     Dosage: 18 MCG (18 MCG), IH
     Route: 055
     Dates: start: 20040601
  3. ADVAIR DISKUS 100/50 [Concomitant]
  4. ALBUTEROL [Concomitant]
  5. LOTREL [Concomitant]
  6. POTASSIUM CHLORIDE [Concomitant]
  7. LUPRON [Concomitant]

REACTIONS (1)
  - DYSPNOEA [None]
